FAERS Safety Report 10015202 (Version 3)
Quarter: 2014Q2

REPORT INFORMATION
  Report Type: Spontaneous
  Country: US (occurrence: US)
  Receive Date: 20140317
  Receipt Date: 20140513
  Transmission Date: 20141212
  Serious: Yes (Other)
  Sender: FDA-Public Use
  Company Number: US-B.I. PHARMACEUTICALS,INC./RIDGEFIELD-2014-BI-11072BP

PATIENT
  Sex: Female
  Weight: 117 kg

DRUGS (24)
  1. MICARDIS HCT TABLETS [Suspect]
     Indication: HYPERTENSION
     Dosage: DOSE PER APPLICATION AND DAILY DOSE: 80 MG/12.5 MG
     Route: 048
     Dates: start: 200605
  2. MICARDIS HCT TABLETS [Suspect]
     Dosage: DOSE PER APPLICATION AND DAILY DOSE: 80 MG/12.5 MG
     Route: 048
     Dates: start: 2007, end: 20140201
  3. HYDROCHLOROTHIAZIDE [Concomitant]
     Indication: HYPERTENSION
     Dosage: 12.5 MG
     Route: 048
  4. FISH OIL [Concomitant]
     Indication: BLOOD CHOLESTEROL INCREASED
     Dosage: 4000 MG
     Route: 048
  5. FISH OIL [Concomitant]
     Dosage: 2400 MG
     Route: 048
     Dates: start: 20130722
  6. FISH OIL [Concomitant]
     Dosage: 2000 MG
     Route: 048
  7. FISH OIL [Concomitant]
     Route: 065
  8. PRILOSEC [Concomitant]
     Indication: GASTROOESOPHAGEAL REFLUX DISEASE
     Dosage: 20 MG
     Route: 048
     Dates: start: 20131219
  9. SYNTHROID [Concomitant]
     Indication: THYROID FUNCTION TEST ABNORMAL
     Dosage: 100 MCG
     Route: 048
     Dates: start: 20131219
  10. NEURONTIN [Concomitant]
     Indication: NEURALGIA
     Dosage: 1800 MG
     Route: 048
     Dates: start: 20131219
  11. DHEA [Concomitant]
     Indication: METABOLIC DISORDER
     Dosage: 50 MG
     Route: 048
  12. NIACIN [Concomitant]
     Dosage: 500 MG
     Route: 048
  13. VITAMIN D [Concomitant]
     Dosage: 2142.8571 U
     Route: 048
  14. CENTRUM SILVER MULTIVITAMIN [Concomitant]
     Dosage: FORMULATION : CAPLET
     Route: 048
  15. FLUZONE [Concomitant]
     Route: 065
     Dates: start: 20131021
  16. TDAP VACCINE [Concomitant]
     Route: 065
     Dates: start: 20081201
  17. MULTI VIT MIN- IRON-FA- HERB [Concomitant]
     Route: 065
     Dates: start: 20130722
  18. VITAMIN D3 [Concomitant]
     Route: 065
     Dates: start: 20130722
  19. LISINOPRIL [Concomitant]
     Indication: HYPERTENSION
     Dosage: 5 MG
     Route: 048
  20. AMBIEN [Concomitant]
     Indication: INSOMNIA
     Dosage: 5 MG
     Route: 048
  21. MEVACOR [Concomitant]
     Indication: BLOOD CHOLESTEROL INCREASED
     Dosage: 40 MG
     Route: 048
  22. TYLENOL NUMBER 3 [Concomitant]
     Indication: ARTHRITIS
     Dosage: DOSE PER APPLICATION AND DAILY DOSE: 300 MG/30 MG
     Route: 048
  23. TYLENOL NUMBER 3 [Concomitant]
     Indication: PAIN
  24. ULTRAM [Concomitant]
     Indication: PAIN
     Dosage: 100 MG
     Route: 048

REACTIONS (2)
  - Tarsal tunnel syndrome [Recovered/Resolved]
  - Renal failure chronic [Not Recovered/Not Resolved]
